FAERS Safety Report 10426511 (Version 2)
Quarter: 2014Q3

REPORT INFORMATION
  Report Type: Spontaneous
  Country: BR (occurrence: BR)
  Receive Date: 20140903
  Receipt Date: 20140919
  Transmission Date: 20150326
  Serious: Yes (Other)
  Sender: FDA-Public Use
  Company Number: BR-ELI_LILLY_AND_COMPANY-BR201408008267

PATIENT
  Age: 58 Year
  Sex: Female
  Weight: 68 kg

DRUGS (5)
  1. HUMULIN N [Suspect]
     Active Substance: INSULIN HUMAN
     Indication: TYPE 1 DIABETES MELLITUS
     Dosage: 22 IU, EACH MORNING
     Route: 058
  2. THYROXINE [Concomitant]
     Active Substance: LEVOTHYROXINE
     Dosage: 25 MG, UNKNOWN
     Route: 065
  3. HUMULIN R [Suspect]
     Active Substance: INSULIN HUMAN
     Dosage: 4 IU, QD
     Route: 058
  4. HUMULIN R [Suspect]
     Active Substance: INSULIN HUMAN
     Indication: TYPE 1 DIABETES MELLITUS
     Dosage: 3 IU, EACH MORNING
     Route: 058
  5. THYROXINE [Concomitant]
     Active Substance: LEVOTHYROXINE
     Indication: THYROID DISORDER
     Dosage: 50 MG, UNKNOWN
     Route: 065

REACTIONS (9)
  - Thyroid disorder [Not Recovered/Not Resolved]
  - Feeling abnormal [Recovered/Resolved]
  - Memory impairment [Recovered/Resolved]
  - Hypoglycaemia [Not Recovered/Not Resolved]
  - Syncope [Not Recovered/Not Resolved]
  - Cough [Recovered/Resolved]
  - Increased appetite [Not Recovered/Not Resolved]
  - Blood glucose decreased [Not Recovered/Not Resolved]
  - Foaming at mouth [Recovered/Resolved]

NARRATIVE: CASE EVENT DATE: 2011
